FAERS Safety Report 9461630 (Version 1)
Quarter: 2013Q3

REPORT INFORMATION
  Report Type: Spontaneous
  Country: US (occurrence: US)
  Receive Date: 20130816
  Receipt Date: 20130816
  Transmission Date: 20140515
  Serious: Yes (Disabling)
  Sender: FDA-Public Use
  Company Number: US-AMGEN-USASP2013057210

PATIENT
  Age: 71 Year
  Sex: Female

DRUGS (1)
  1. ENBREL [Suspect]
     Indication: PSORIASIS
     Dosage: 25 MG, 2 TIMES/WK
     Route: 058
     Dates: start: 201304, end: 20130808

REACTIONS (3)
  - Night sweats [Recovering/Resolving]
  - Dyspnoea [Recovering/Resolving]
  - Local swelling [Recovering/Resolving]
